FAERS Safety Report 18565900 (Version 1)
Quarter: 2020Q4

REPORT INFORMATION
  Report Type: Other
  Country: US (occurrence: TN)
  Receive Date: 20201201
  Receipt Date: 20201201
  Transmission Date: 20210114
  Serious: Yes (Hospitalization, Other)
  Sender: FDA-Public Use
  Company Number: TN-BRECKENRIDGE PHARMACEUTICAL, INC.-2096499

PATIENT
  Age: 25 Year
  Sex: Female

DRUGS (1)
  1. TERBINAFINE. [Suspect]
     Active Substance: TERBINAFINE
     Indication: DERMATOPHYTOSIS

REACTIONS (2)
  - Pustular psoriasis [None]
  - Pityriasis rosea [None]
